FAERS Safety Report 13718988 (Version 1)
Quarter: 2017Q3

REPORT INFORMATION
  Report Type: Spontaneous
  Country: US (occurrence: US)
  Receive Date: 20170705
  Receipt Date: 20170705
  Transmission Date: 20171127
  Serious: No
  Sender: FDA-Public Use
  Company Number: US-ROCHE-1918494

PATIENT
  Sex: Female

DRUGS (1)
  1. OCRELIZUMAB. [Suspect]
     Active Substance: OCRELIZUMAB
     Indication: MULTIPLE SCLEROSIS
     Route: 065
     Dates: start: 201301

REACTIONS (5)
  - Infection [Unknown]
  - Herpes zoster [Unknown]
  - Temperature intolerance [Unknown]
  - Paraesthesia [Unknown]
  - Fatigue [Unknown]
